FAERS Safety Report 16655050 (Version 2)
Quarter: 2021Q4

REPORT INFORMATION
  Report Type: Spontaneous
  Country: CA (occurrence: CA)
  Receive Date: 20190801
  Receipt Date: 20211109
  Transmission Date: 20220303
  Serious: Yes (Hospitalization, Other)
  Sender: FDA-Public Use
  Company Number: CA-AUROBINDO-AUR-APL-2019-043923

PATIENT
  Age: 29 Year
  Sex: Female
  Weight: 48 kg

DRUGS (1)
  1. LEVETIRACETAM [Suspect]
     Active Substance: LEVETIRACETAM
     Indication: Epilepsy
     Dosage: 500.0 MILLIGRAM, TWO TIMES A DAY
     Route: 048

REACTIONS (11)
  - Seizure [Unknown]
  - Chills [Unknown]
  - Drug hypersensitivity [Unknown]
  - Gait disturbance [Unknown]
  - Hallucination [Unknown]
  - Influenza [Unknown]
  - Oropharyngeal pain [Unknown]
  - Pain [Unknown]
  - Pyrexia [Unknown]
  - Rash [Unknown]
  - Stomatitis [Unknown]
